FAERS Safety Report 16584593 (Version 1)
Quarter: 2019Q3

REPORT INFORMATION
  Report Type: Spontaneous
  Country: IL (occurrence: IL)
  Receive Date: 20190717
  Receipt Date: 20190717
  Transmission Date: 20191004
  Serious: Yes (Hospitalization)
  Sender: FDA-Public Use
  Company Number: IL-SA-2019SA188524

PATIENT
  Age: 79 Year
  Sex: Male

DRUGS (2)
  1. LANTUS [Suspect]
     Active Substance: INSULIN GLARGINE
     Dosage: 30 U, UNK
     Route: 065
  2. GLUCOMINE [METFORMIN HYDROCHLORIDE] [Concomitant]
     Dosage: UNK UNK, UNK
     Route: 065

REACTIONS (3)
  - Fall [Unknown]
  - Back pain [Unknown]
  - Blood glucose abnormal [Unknown]
